FAERS Safety Report 9925198 (Version 1)
Quarter: 2014Q1

REPORT INFORMATION
  Report Type: Spontaneous
  Country: US (occurrence: None)
  Receive Date: 20140225
  Receipt Date: 20140225
  Transmission Date: 20141002
  Serious: Yes (Other)
  Sender: FDA-Public Use
  Company Number: None

PATIENT
  Age: 6 Year
  Sex: Female
  Weight: 35 kg

DRUGS (7)
  1. MORPHINE [Suspect]
     Indication: PAIN
     Dosage: 90 DAYS FROM CPD DATE ?1.75 MG ?PRN/AS NEEDED ?INTRAVENOUS
     Route: 042
  2. LIDOCAINE [Concomitant]
  3. NS [Concomitant]
  4. ONDANSETRON [Concomitant]
  5. ACETAMINOPHEN [Concomitant]
  6. DSW [Concomitant]
  7. KCL [Concomitant]

REACTIONS (2)
  - Chest pain [None]
  - Crying [None]
